FAERS Safety Report 7627690-4 (Version None)
Quarter: 2011Q3

REPORT INFORMATION
  Report Type: 
  Country: None (occurrence: None)
  Receive Date: 20110721
  Receipt Date: 20110715
  Transmission Date: 20111222
  Serious: Yes (Hospitalization, Other)
  Sender: FDA-Public Use
  Company Number: AU-ABBOTT-11P-008-0731605-00

PATIENT
  Sex: Female
  Weight: 82 kg

DRUGS (4)
  1. HUMIRA [Suspect]
     Indication: CROHN'S DISEASE
     Dosage: LOADING DOSE
     Dates: start: 20101215, end: 20101215
  2. HUMIRA [Suspect]
     Dates: start: 20110112, end: 20110527
  3. HUMIRA [Suspect]
     Dosage: LOADING DOSE
     Dates: start: 20101229, end: 20101229
  4. AZATHIOPRINE [Concomitant]
     Indication: PRODUCT USED FOR UNKNOWN INDICATION

REACTIONS (2)
  - BASAL GANGLIA INFARCTION [None]
  - DIZZINESS [None]
